FAERS Safety Report 16208457 (Version 2)
Quarter: 2019Q2

REPORT INFORMATION
  Report Type: Report from Study
  Country: US (occurrence: US)
  Receive Date: 20190417
  Receipt Date: 20190507
  Transmission Date: 20190711
  Serious: Yes (Hospitalization, Other)
  Sender: FDA-Public Use
  Company Number: US-BRISTOL-MYERS SQUIBB COMPANY-BMS-2019-037743

PATIENT
  Age: 40 Year
  Sex: Male
  Weight: 123 kg

DRUGS (2)
  1. NIVOLUMAB [Suspect]
     Active Substance: NIVOLUMAB
     Indication: DIFFUSE LARGE B-CELL LYMPHOMA
     Dosage: 240 MILLIGRAM
     Route: 042
     Dates: start: 20190129
  2. VARLILUMAB [Suspect]
     Active Substance: VARLILUMAB
     Indication: DIFFUSE LARGE B-CELL LYMPHOMA
     Dosage: 370 MILLIGRAM
     Route: 042
     Dates: start: 20190129

REACTIONS (1)
  - Histoplasmosis [Recovering/Resolving]

NARRATIVE: CASE EVENT DATE: 20190327
